FAERS Safety Report 4313361-9 (Version None)
Quarter: 2004Q1

REPORT INFORMATION
  Report Type: 
  Country: None (occurrence: None)
  Receive Date: 20040305
  Receipt Date: 20040305
  Transmission Date: 20041129
  Serious: Yes (Other)
  Sender: FDA-Public Use
  Company Number: None

PATIENT
  Age: 57 Year
  Sex: Female
  Weight: 107.5025 kg

DRUGS (3)
  1. CARBOPLATIN [Suspect]
     Indication: OVARIAN CANCER
     Dosage: 700 MG IVPB
     Route: 040
     Dates: start: 20040115
  2. CARBOPLATIN [Suspect]
     Indication: OVARIAN CANCER
     Dosage: 700 MG IVPB
     Route: 040
     Dates: start: 20040205
  3. TAXOL [Suspect]
     Dates: start: 20020901, end: 20030107

REACTIONS (5)
  - CHEST PAIN [None]
  - DYSPNOEA [None]
  - OXYGEN SATURATION DECREASED [None]
  - PAIN IN EXTREMITY [None]
  - RASH [None]
